FAERS Safety Report 21967016 (Version 1)
Quarter: 2023Q1

REPORT INFORMATION
  Report Type: Spontaneous
  Country: US (occurrence: None)
  Receive Date: 20230206
  Receipt Date: 20230206
  Transmission Date: 20230417
  Serious: Yes (Other)
  Sender: FDA-Public Use
  Company Number: None

PATIENT
  Age: 76 Year
  Sex: Female
  Weight: 71.1 kg

DRUGS (19)
  1. EZETIMIBE [Suspect]
     Active Substance: EZETIMIBE
     Indication: Blood cholesterol increased
     Dosage: OTHER QUANTITY : 1 TABLET(S);?FREQUENCY : DAILY;?
     Route: 048
     Dates: start: 20230131, end: 20230205
  2. Rosvastatin [Concomitant]
  3. flonaise nasal spray [Concomitant]
  4. ESTRACE [Concomitant]
     Active Substance: ESTRADIOL
  5. Monelulast [Concomitant]
  6. Pantaprozle [Concomitant]
  7. FAMOTIDINE [Concomitant]
     Active Substance: FAMOTIDINE
  8. Setralyne [Concomitant]
  9. SUCRALFATE [Concomitant]
     Active Substance: SUCRALFATE
  10. LD Nalotrexone [Concomitant]
  11. LORATADINE [Concomitant]
     Active Substance: LORATADINE
  12. Nutraview [Concomitant]
  13. HERBALS\TURMERIC [Concomitant]
     Active Substance: HERBALS\TURMERIC
  14. VITAMIN C [Concomitant]
     Active Substance: ASCORBIC ACID
  15. Multi Vitamin [Concomitant]
  16. Caclium plus magnesium [Concomitant]
  17. Llysine [Concomitant]
  18. TAURINE [Concomitant]
     Active Substance: TAURINE
  19. PRIMROSE OIL [Concomitant]

REACTIONS (6)
  - Muscle spasms [None]
  - Muscle spasms [None]
  - Sleep disorder [None]
  - Muscle spasms [None]
  - Myalgia [None]
  - Arthralgia [None]

NARRATIVE: CASE EVENT DATE: 20230205
